FAERS Safety Report 16742234 (Version 1)
Quarter: 2019Q3

REPORT INFORMATION
  Report Type: Spontaneous
  Country: FR (occurrence: FR)
  Receive Date: 20190826
  Receipt Date: 20190826
  Transmission Date: 20191005
  Serious: Yes (Hospitalization)
  Sender: FDA-Public Use
  Company Number: FR-MYLANLABS-2019M1078668

PATIENT
  Age: 39 Year
  Sex: Female
  Weight: 62 kg

DRUGS (4)
  1. PREDNISOLONE. [Suspect]
     Active Substance: PREDNISOLONE
     Indication: OROPHARYNGEAL PAIN
     Dosage: 60 MILLIGRAM, QD
     Route: 048
     Dates: start: 20190311, end: 20190313
  2. IBUPROFEN. [Suspect]
     Active Substance: IBUPROFEN
     Indication: OROPHARYNGEAL PAIN
     Dosage: 800 MILLIGRAM
     Route: 048
     Dates: start: 20190311, end: 20190311
  3. SPEDIFEN                           /00109201/ [Suspect]
     Active Substance: IBUPROFEN
     Indication: OROPHARYNGEAL PAIN
     Dosage: 1 DOSAGE FORM
     Route: 048
     Dates: start: 20190311, end: 20190311
  4. AMOXICILLINE                       /00249601/ [Concomitant]
     Active Substance: AMOXICILLIN
     Indication: OROPHARYNGEAL PAIN
     Dosage: 3 GRAM, QD
     Route: 048
     Dates: start: 20190311, end: 20190313

REACTIONS (1)
  - Peritonsillar abscess [Recovered/Resolved]

NARRATIVE: CASE EVENT DATE: 20190314
